FAERS Safety Report 7098949 (Version 2)
Quarter: 2014Q2

REPORT INFORMATION
  Report Type: Spontaneous
  Country: US (occurrence: None)
  Receive Date: 20090820
  Receipt Date: 20140424
  Transmission Date: 20141212
  Serious: Yes (Other)
  Sender: FDA-Public Use
  Company Number: 2009S1006743

PATIENT
  Age: 55 Year
  Sex: Female
  Weight: 89.13 kg

DRUGS (8)
  1. FLEET PHOSPHO-SODA [Suspect]
     Indication: COLONOSCOPY
     Dosage: 90ML, 2 IN 24 HOURS, ORAL
     Route: 048
     Dates: start: 20061211, end: 20061212
  2. LANTUS (INSULIN GLARGINE) [Concomitant]
  3. VYTORIN (SIMVASTATN, EZETIMIBE) [Concomitant]
  4. EFFEXOR (VENLAFAXINE) [Concomitant]
  5. IRON SULFATE (FERROUS SULFATE) [Concomitant]
  6. SYNTHROID (LEVOTHYROXINE SODIUM) [Concomitant]
  7. TOPROL XL (METOPROLOL SUCCINATE) [Concomitant]
  8. ASPIRIN (ACETYLSALICYLIC ACID) [Concomitant]

REACTIONS (9)
  - Renal failure acute [None]
  - Anaemia [None]
  - Renal tubular necrosis [None]
  - Acute phosphate nephropathy [None]
  - Hyperparathyroidism secondary [None]
  - Dehydration [None]
  - Diarrhoea [None]
  - Nausea [None]
  - Hypotension [None]
